FAERS Safety Report 20916389 (Version 1)
Quarter: 2022Q2

REPORT INFORMATION
  Report Type: Spontaneous
  Country: CH (occurrence: CH)
  Receive Date: 20220604
  Receipt Date: 20220604
  Transmission Date: 20220721
  Serious: Yes (Other)
  Sender: FDA-Public Use
  Company Number: None

PATIENT

DRUGS (4)
  1. HYDROCHLOROTHIAZIDE [Suspect]
     Active Substance: HYDROCHLOROTHIAZIDE
     Dosage: LONG TERM , UNIT DOSE : 2 DF , FREQUENCY TIME : 1 DAY , PARENT^S ROUTE OF ADMIN : ORAL , STRENGTH :
     Route: 064
  2. LORAZEPAM [Suspect]
     Active Substance: LORAZEPAM
     Dosage: LONG TERM , LONG TERM , UNIT DOSE : 3 MG, FREQUENCY TIME : 1 DAY , PARENT^S ROUTE OF ADMIN : ORAL
     Route: 064
  3. ZOLPIDEM TARTRATE [Suspect]
     Active Substance: ZOLPIDEM TARTRATE
     Dosage: 20 MILLIGRAM DAILY; LONG TERM , LONG TERM , UNIT DOSE : 20 MG, FREQUENCY TIME : 1 DAY , PARENT^S ROU
     Route: 064
  4. TIROSINT [Concomitant]
     Active Substance: LEVOTHYROXINE SODIUM
     Indication: Autoimmune thyroiditis
     Dosage: LONG TERM ,  PARENT^S ROUTE OF ADMIN : ORAL
     Route: 064
     Dates: end: 202203

REACTIONS (2)
  - Abortion spontaneous [Recovered/Resolved]
  - Exposure during pregnancy [Recovered/Resolved]

NARRATIVE: CASE EVENT DATE: 20220213
